FAERS Safety Report 9817667 (Version 2)
Quarter: 2014Q2

REPORT INFORMATION
  Report Type: Report from Study
  Country: US (occurrence: US)
  Receive Date: 20140115
  Receipt Date: 20140610
  Transmission Date: 20141212
  Serious: Yes (Hospitalization)
  Sender: FDA-Public Use
  Company Number: US-ROCHE-1333034

PATIENT
  Sex: Male

DRUGS (3)
  1. TARCEVA [Suspect]
     Indication: LUNG NEOPLASM MALIGNANT
     Dosage: TAKES 5 DAYS A WEEK (MON-FRI), WEEKEND OFF
     Route: 048
     Dates: start: 20101220, end: 20140529
  2. KLONOPIN [Suspect]
     Indication: ANXIETY
     Dosage: ONCE EVERY NIGHT OR MORE IF NEEDED FOR ANXIETY
     Route: 048
  3. AMLODIPINE [Concomitant]
     Indication: BLOOD PRESSURE
     Route: 065

REACTIONS (2)
  - Bacterial infection [Recovered/Resolved]
  - Pruritus [Not Recovered/Not Resolved]
